FAERS Safety Report 11393564 (Version 1)
Quarter: 2015Q3

REPORT INFORMATION
  Report Type: Spontaneous
  Country: US (occurrence: US)
  Receive Date: 20150818
  Receipt Date: 20150818
  Transmission Date: 20151125
  Serious: No
  Sender: FDA-Public Use
  Company Number: US-009507513-1508USA000136

PATIENT
  Sex: Female

DRUGS (1)
  1. NEXPLANON [Suspect]
     Active Substance: ETONOGESTREL
     Indication: CONTRACEPTION
     Dosage: 1 ROD/ 3 YEARS
     Route: 059
     Dates: start: 20140505, end: 20150727

REACTIONS (7)
  - Headache [Unknown]
  - Polymenorrhoea [Unknown]
  - Device kink [Recovered/Resolved]
  - Feeling abnormal [Unknown]
  - Muscle spasms [Unknown]
  - Mood swings [Unknown]
  - Menorrhagia [Unknown]

NARRATIVE: CASE EVENT DATE: 2015
